FAERS Safety Report 9974825 (Version 1)
Quarter: 2014Q1

REPORT INFORMATION
  Report Type: Report from Study
  Country: US (occurrence: US)
  Receive Date: 20140306
  Receipt Date: 20140306
  Transmission Date: 20141002
  Serious: No
  Sender: FDA-Public Use
  Company Number: US-ABBVIE-13P-163-1157802-00

PATIENT
  Age: 50 Year
  Sex: Female

DRUGS (7)
  1. HUMIRA [Suspect]
     Indication: CROHN^S DISEASE
     Route: 058
     Dates: start: 20130828, end: 20130924
  2. HUMIRA [Suspect]
     Route: 058
     Dates: start: 20131113
  3. CHOLESTEROL MEDICATIONS [Concomitant]
     Indication: BLOOD CHOLESTEROL INCREASED
  4. ANTIHYPERTENSIVES [Concomitant]
     Indication: HYPERTENSION
  5. ANTIDEPRESSANTS [Concomitant]
     Indication: DEPRESSION
  6. CROHN^S MEDICATIONS [Concomitant]
     Indication: CROHN^S DISEASE
  7. PREDNISONE [Concomitant]
     Indication: PRODUCT USED FOR UNKNOWN INDICATION
     Dosage: TAPERED

REACTIONS (5)
  - Swollen tongue [Recovering/Resolving]
  - Swelling face [Recovering/Resolving]
  - Aphasia [Not Recovered/Not Resolved]
  - Diarrhoea [Not Recovered/Not Resolved]
  - Abdominal pain [Not Recovered/Not Resolved]
